FAERS Safety Report 20927951 (Version 1)
Quarter: 2022Q2

REPORT INFORMATION
  Report Type: Spontaneous
  Country: US (occurrence: US)
  Receive Date: 20220607
  Receipt Date: 20220607
  Transmission Date: 20220721
  Serious: No
  Sender: FDA-Public Use
  Company Number: US-PERRIGO-22US000110

PATIENT
  Age: 61 Year
  Sex: Male
  Weight: 81.633 kg

DRUGS (2)
  1. MINOXIDIL [Suspect]
     Active Substance: MINOXIDIL
     Indication: Alopecia
     Dosage: 1/2 CAPFUL, BID
     Route: 061
     Dates: start: 202104, end: 20220105
  2. UNSPECIFIED INGREDIENT [Concomitant]
     Active Substance: UNSPECIFIED INGREDIENT
     Indication: Blood cholesterol increased
     Dosage: UNK
     Route: 065

REACTIONS (5)
  - Application site exfoliation [Recovered/Resolved]
  - Application site ulcer [Recovered/Resolved]
  - Urticaria [Recovered/Resolved]
  - Application site vesicles [Recovered/Resolved]
  - Application site pruritus [Recovered/Resolved]

NARRATIVE: CASE EVENT DATE: 20211001
